FAERS Safety Report 12184098 (Version 1)
Quarter: 2016Q1

REPORT INFORMATION
  Report Type: Spontaneous
  Country: US (occurrence: US)
  Receive Date: 20160316
  Receipt Date: 20160316
  Transmission Date: 20160526
  Serious: No
  Sender: FDA-Public Use
  Company Number: US-BAYER-2016-051724

PATIENT
  Age: 26 Year
  Sex: Female
  Weight: 65.76 kg

DRUGS (1)
  1. ALEVE [Suspect]
     Active Substance: NAPROXEN SODIUM
     Indication: ANALGESIC THERAPY
     Dosage: 2 DF, TID
     Route: 048

REACTIONS (5)
  - Pyrexia [None]
  - Headache [None]
  - Product use issue [None]
  - Drug ineffective [None]
  - Head discomfort [None]

NARRATIVE: CASE EVENT DATE: 20160312
